FAERS Safety Report 19653395 (Version 2)
Quarter: 2021Q3

REPORT INFORMATION
  Report Type: Spontaneous
  Country: US (occurrence: US)
  Receive Date: 20210803
  Receipt Date: 20210827
  Transmission Date: 20211014
  Serious: Yes (Other)
  Sender: FDA-Public Use
  Company Number: US-JNJFOC-20210741083

PATIENT
  Sex: Female

DRUGS (1)
  1. NEUTROGENA ULTRA SHEER FACE MIST SUNSCREEN BROAD SPECTRUM SPF 55 [Suspect]
     Active Substance: AVOBENZONE\HOMOSALATE\OCTISALATE\OCTOCRYLENE
     Indication: PROPHYLAXIS AGAINST SOLAR RADIATION
     Dosage: APPLIED LIBERALLY ONCE DAILY
     Route: 061
     Dates: start: 20210714

REACTIONS (2)
  - Application site hypersensitivity [Unknown]
  - Application site acne [Unknown]

NARRATIVE: CASE EVENT DATE: 202107
